FAERS Safety Report 19101042 (Version 2)
Quarter: 2021Q2

REPORT INFORMATION
  Report Type: Spontaneous
  Country: JP (occurrence: JP)
  Receive Date: 20210407
  Receipt Date: 20210428
  Transmission Date: 20210717
  Serious: Yes (Death, Other)
  Sender: FDA-Public Use
  Company Number: NVSJ2021JP005371

PATIENT
  Age: 72 Year
  Sex: Female

DRUGS (3)
  1. ZYKADIA [Suspect]
     Active Substance: CERITINIB
     Indication: NON-SMALL CELL LUNG CANCER
     Dosage: 450 MG
     Route: 048
     Dates: start: 20200729, end: 20200828
  2. ZYKADIA [Suspect]
     Active Substance: CERITINIB
     Dosage: 150 MG
     Route: 048
     Dates: start: 20201009, end: 20201228
  3. ZYKADIA [Suspect]
     Active Substance: CERITINIB
     Dosage: 300 MG
     Route: 048
     Dates: start: 20201229, end: 20210215

REACTIONS (5)
  - Malignant neoplasm progression [Unknown]
  - Non-small cell lung cancer [Fatal]
  - Malignant neoplasm progression [Fatal]
  - Hepatic function abnormal [Recovering/Resolving]
  - Metastases to liver [Unknown]

NARRATIVE: CASE EVENT DATE: 20200828
